FAERS Safety Report 18769008 (Version 1)
Quarter: 2021Q1

REPORT INFORMATION
  Report Type: Report from Study
  Country: US (occurrence: US)
  Receive Date: 20210121
  Receipt Date: 20210121
  Transmission Date: 20210419
  Serious: Yes (Hospitalization)
  Sender: FDA-Public Use
  Company Number: US-MYLANLABS-2021M1003687

PATIENT
  Age: 5 Year
  Sex: Male

DRUGS (5)
  1. KETAMINE [Suspect]
     Active Substance: KETAMINE
     Indication: FEBRILE INFECTION-RELATED EPILEPSY SYNDROME
     Route: 065
  2. PENTOBARBITAL. [Suspect]
     Active Substance: PENTOBARBITAL
     Indication: FEBRILE INFECTION-RELATED EPILEPSY SYNDROME
  3. MIDAZOLAM. [Suspect]
     Active Substance: MIDAZOLAM
     Indication: FEBRILE INFECTION-RELATED EPILEPSY SYNDROME
  4. LIDOCAINE. [Suspect]
     Active Substance: LIDOCAINE
     Indication: FEBRILE INFECTION-RELATED EPILEPSY SYNDROME
     Route: 065
  5. IMMUNOGLOBULINS NOS [Suspect]
     Active Substance: IMMUNE GLOBULIN NOS
     Indication: FEBRILE INFECTION-RELATED EPILEPSY SYNDROME
     Route: 042

REACTIONS (2)
  - Drug ineffective for unapproved indication [Unknown]
  - Off label use [Unknown]
